FAERS Safety Report 16766694 (Version 1)
Quarter: 2019Q3

REPORT INFORMATION
  Report Type: Spontaneous
  Country: NL (occurrence: NL)
  Receive Date: 20190903
  Receipt Date: 20190903
  Transmission Date: 20191005
  Serious: Yes (Hospitalization)
  Sender: FDA-Public Use
  Company Number: NL-PROVELL PHARMACEUTICALS-2073942

PATIENT
  Sex: Female

DRUGS (1)
  1. EUTHYROX [Suspect]
     Active Substance: LEVOTHYROXINE SODIUM
     Indication: PRODUCT USED FOR UNKNOWN INDICATION
     Dates: start: 201908

REACTIONS (4)
  - Hypertension [None]
  - Hypersensitivity [None]
  - Drug intolerance [None]
  - Palpitations [None]

NARRATIVE: CASE EVENT DATE: 201908
